FAERS Safety Report 15798922 (Version 5)
Quarter: 2019Q2

REPORT INFORMATION
  Report Type: Spontaneous
  Country: CA (occurrence: CA)
  Receive Date: 20190108
  Receipt Date: 20190402
  Transmission Date: 20190711
  Serious: Yes (Hospitalization, Other)
  Sender: FDA-Public Use
  Company Number: CA-PFIZER INC-2018495306

PATIENT
  Age: 69 Year
  Sex: Female

DRUGS (5)
  1. METHOTREXATE SODIUM. [Suspect]
     Active Substance: METHOTREXATE SODIUM
     Indication: ARTHRITIS
     Dosage: 20 MG, WEEKLY
     Route: 048
  2. ARTHROTEC [Concomitant]
     Active Substance: DICLOFENAC SODIUM\MISOPROSTOL
     Dosage: 50 MG, 1X/DAY
     Dates: end: 2019
  3. LYRICA [Concomitant]
     Active Substance: PREGABALIN
     Indication: SPINAL STENOSIS
     Dosage: AT BEDTIME
  4. ENDOCET [Concomitant]
     Active Substance: ACETAMINOPHEN\OXYCODONE HYDROCHLORIDE
     Indication: PAIN IN EXTREMITY
  5. ENDOCET [Concomitant]
     Active Substance: ACETAMINOPHEN\OXYCODONE HYDROCHLORIDE
     Indication: NERVE INJURY
     Dosage: UNK

REACTIONS (7)
  - Drug ineffective [Unknown]
  - Pruritus [Recovered/Resolved]
  - Liver disorder [Not Recovered/Not Resolved]
  - Jaundice [Recovering/Resolving]
  - Product dose omission [Unknown]
  - Bile duct obstruction [Unknown]
  - Lower respiratory tract infection [Unknown]
